FAERS Safety Report 4741699-X (Version None)
Quarter: 2005Q3

REPORT INFORMATION
  Report Type: 
  Country: None (occurrence: None)
  Receive Date: 20050804
  Receipt Date: 20050218
  Transmission Date: 20060218
  Serious: Yes (Other)
  Sender: FDA-Public Use
  Company Number: US-JNJFOC-20050205237

PATIENT
  Age: 5 Year
  Sex: Female
  Weight: 17.6903 kg

DRUGS (1)
  1. CHILDREN'S MOTRIN [Suspect]
     Indication: PYREXIA
     Dosage: 150 MG, 1-4 TIMES A DAY
     Dates: start: 20041122, end: 20041201

REACTIONS (5)
  - CANDIDIASIS [None]
  - DIARRHOEA [None]
  - HERPES VIRUS INFECTION [None]
  - IMPETIGO [None]
  - STEVENS-JOHNSON SYNDROME [None]
